FAERS Safety Report 20906936 (Version 2)
Quarter: 2022Q2

REPORT INFORMATION
  Report Type: Spontaneous
  Country: FR (occurrence: FR)
  Receive Date: 20220602
  Receipt Date: 20220616
  Transmission Date: 20220721
  Serious: Yes (Other)
  Sender: FDA-Public Use
  Company Number: FR-ADVANZ PHARMA-202205002894

PATIENT
  Sex: Male

DRUGS (2)
  1. ALPROSTADIL [Suspect]
     Active Substance: ALPROSTADIL
     Dosage: UNK
  2. EDEX [Suspect]
     Active Substance: ALPROSTADIL
     Dosage: 2 DOSAGE FORM, WEEKLY, 2 INJECTIONS PER WEEK, 5 YEARS AGO, 1 EASYPEN

REACTIONS (4)
  - Injection site pain [Recovered/Resolved]
  - Incorrect dose administered by device [Unknown]
  - Device defective [Unknown]
  - Device difficult to use [Unknown]

NARRATIVE: CASE EVENT DATE: 20220516
